FAERS Safety Report 8248640-6 (Version None)
Quarter: 2012Q1

REPORT INFORMATION
  Report Type: 
  Country: None (occurrence: None)
  Receive Date: 20120331
  Receipt Date: 20120320
  Transmission Date: 20120608
  Serious: Yes (Other)
  Sender: FDA-Public Use
  Company Number: BR-AMGEN-BRASP2012018659

PATIENT
  Age: 42 Year
  Sex: Female
  Weight: 79 kg

DRUGS (2)
  1. ENBREL [Suspect]
     Dosage: UNK
     Route: 058
     Dates: end: 20120301
  2. ENBREL [Suspect]
     Indication: ANKYLOSING SPONDYLITIS
     Dosage: 50 MG, ONCE WEEKLY
     Route: 058
     Dates: start: 20110101

REACTIONS (3)
  - DENGUE FEVER [None]
  - APPLICATION SITE PAIN [None]
  - INFLUENZA [None]
